FAERS Safety Report 6359016-0 (Version None)
Quarter: 2009Q3

REPORT INFORMATION
  Report Type: 
  Country: None (occurrence: None)
  Receive Date: 20090917
  Receipt Date: 20090908
  Transmission Date: 20100115
  Serious: Yes (Other)
  Sender: FDA-Public Use
  Company Number: US-ASTRAZENECA-2006UW12045

PATIENT
  Age: 16797 Day
  Sex: Female
  Weight: 94 kg

DRUGS (15)
  1. SEROQUEL [Suspect]
     Indication: BIPOLAR DISORDER
     Route: 048
     Dates: start: 19980101
  2. SEROQUEL [Suspect]
     Dosage: 100-400 MG EVERY NIGHT
     Route: 048
     Dates: start: 20040323
  3. ZYPREXA [Suspect]
     Route: 065
     Dates: start: 20050101
  4. ATENOLOL [Concomitant]
     Dosage: 25-50 MG
     Dates: start: 20040211
  5. TEGRETOL [Concomitant]
     Dates: start: 20040323
  6. SINGULAIR [Concomitant]
     Route: 048
     Dates: start: 20040323
  7. PREDNISONE [Concomitant]
     Dosage: 5-40 MG PER DAY
     Dates: start: 20040323
  8. ENALAPRIL MALEATE [Concomitant]
     Dosage: 5-40 MG
     Dates: start: 20040211
  9. SOMA [Concomitant]
     Dates: start: 20040323
  10. CELEBREX [Concomitant]
     Dates: start: 20040323
  11. PRILOSEC [Concomitant]
     Dosage: 20-40 MG
     Dates: start: 20040323
  12. LITHIUM CARBONATE [Concomitant]
     Dosage: 600-1800 MG
     Route: 048
     Dates: start: 20040301
  13. AMBIEN [Concomitant]
     Dates: start: 20040301
  14. LANTUS [Concomitant]
     Dosage: 25 UNIT-40 UNIT
     Dates: start: 20050907
  15. NORTRIPTYLINE HCL [Concomitant]
     Dosage: 75 MG AT NIGHT
     Dates: start: 20050907

REACTIONS (7)
  - DIABETES MELLITUS [None]
  - DIABETIC COMA [None]
  - DIABETIC GASTROPARESIS [None]
  - DIABETIC KETOACIDOSIS [None]
  - HYPERGLYCAEMIA [None]
  - PANCREATITIS [None]
  - TYPE 2 DIABETES MELLITUS [None]
